FAERS Safety Report 18732843 (Version 1)
Quarter: 2021Q1

REPORT INFORMATION
  Report Type: Spontaneous
  Country: FR (occurrence: FR)
  Receive Date: 20210112
  Receipt Date: 20210112
  Transmission Date: 20210419
  Serious: Yes (Other)
  Sender: FDA-Public Use
  Company Number: FR-009507513-2101FRA004515

PATIENT
  Age: 79 Year
  Sex: Female

DRUGS (1)
  1. INVANZ [Suspect]
     Active Substance: ERTAPENEM SODIUM
     Indication: SEPTIC SHOCK
     Dosage: 1 GRAM, QD
     Route: 041
     Dates: start: 20201124, end: 20201203

REACTIONS (2)
  - Generalised tonic-clonic seizure [Recovered/Resolved]
  - Antibiotic level above therapeutic [Recovered/Resolved]

NARRATIVE: CASE EVENT DATE: 20201129
